FAERS Safety Report 23150315 (Version 1)
Quarter: 2023Q4

REPORT INFORMATION
  Report Type: Report from Study
  Country: UY (occurrence: UY)
  Receive Date: 20231106
  Receipt Date: 20231106
  Transmission Date: 20240109
  Serious: Yes (Other)
  Sender: FDA-Public Use
  Company Number: UY-ABBVIE-5477513

PATIENT
  Age: 76 Year
  Sex: Female

DRUGS (1)
  1. RINVOQ [Suspect]
     Active Substance: UPADACITINIB
     Indication: Rheumatoid arthritis
     Dosage: STRENGTH- 15 MG
     Route: 048
     Dates: start: 20210114

REACTIONS (7)
  - Cataract [Unknown]
  - Unevaluable event [Recovering/Resolving]
  - Abdominal distension [Recovering/Resolving]
  - Blood cholesterol increased [Unknown]
  - Abdominal pain upper [Recovering/Resolving]
  - Eye discharge [Unknown]
  - Gastritis [Recovering/Resolving]

NARRATIVE: CASE EVENT DATE: 20230901
